FAERS Safety Report 8921110 (Version 1)
Quarter: 2012Q4

REPORT INFORMATION
  Report Type: Report from Study
  Country: CA (occurrence: CA)
  Receive Date: 20121121
  Receipt Date: 20121121
  Transmission Date: 20130627
  Serious: Yes (Other)
  Sender: FDA-Public Use
  Company Number: CA-ABBOTT-12P-028-0995423-00

PATIENT
  Sex: Female

DRUGS (1)
  1. HUMIRA [Suspect]
     Dosage: Weekly
     Route: 058
     Dates: start: 20081219, end: 20120928

REACTIONS (2)
  - Erythema nodosum [Not Recovered/Not Resolved]
  - Oedema peripheral [Not Recovered/Not Resolved]
